FAERS Safety Report 5290958-3 (Version None)
Quarter: 2007Q2

REPORT INFORMATION
  Report Type: 
  Country: None (occurrence: None)
  Receive Date: 20070409
  Receipt Date: 20070330
  Transmission Date: 20071010
  Serious: Yes (Life-Threatening, Hospitalization)
  Sender: FDA-Public Use
  Company Number: DE-ROCHE-479937

PATIENT
  Sex: Male
  Weight: 62 kg

DRUGS (5)
  1. XELODA [Suspect]
     Dosage: 2X1000 MG/M2 FROM DAYS 1 TO 14 OF A TWO WEEK CYCLE. (CYCLE 1).
     Route: 048
  2. XELODA [Suspect]
     Dosage: 2X2000 MG GIVEN ON DAY ONE TO DAY TWO(CYCLE 2)
     Route: 048
  3. XELODA [Suspect]
     Dosage: GIVEN FROM DAY 3 TO DAY 7.
     Route: 048
  4. OXALIPLATIN [Suspect]
     Dosage: DOSAGE REGIMEN: 130 MG/KG/DAY 1.
     Route: 042
  5. AVASTIN [Concomitant]
     Dosage: DOSAGE REGIMEN: 5 MG/KG/DAY 1.

REACTIONS (5)
  - DIARRHOEA [None]
  - INFLAMMATION [None]
  - MUCOSAL INFLAMMATION [None]
  - PYREXIA [None]
  - SHOCK [None]
